FAERS Safety Report 11061724 (Version 1)
Quarter: 2015Q2

REPORT INFORMATION
  Report Type: Spontaneous
  Country: US (occurrence: None)
  Receive Date: 20150423
  Receipt Date: 20150423
  Transmission Date: 20150821
  Serious: Yes (Hospitalization)
  Sender: FDA-Public Use
  Company Number: None

PATIENT
  Age: 64 Year
  Sex: Male
  Weight: 119 kg

DRUGS (2)
  1. MIDAZOLAM [Suspect]
     Active Substance: MIDAZOLAM\MIDAZOLAM HYDROCHLORIDE
     Indication: SURGERY
     Route: 058
     Dates: start: 20141014, end: 20141014
  2. FENTANYL. [Suspect]
     Active Substance: FENTANYL
     Indication: SURGERY
     Route: 058
     Dates: start: 20141014, end: 20141014

REACTIONS (4)
  - Myoclonus [None]
  - Seizure [None]
  - Respiratory disorder [None]
  - Muscle contracture [None]

NARRATIVE: CASE EVENT DATE: 20141014
